FAERS Safety Report 9386621 (Version 1)
Quarter: 2013Q3

REPORT INFORMATION
  Report Type: Report from Study
  Country: US (occurrence: US)
  Receive Date: 20130708
  Receipt Date: 20130708
  Transmission Date: 20140515
  Serious: No
  Sender: FDA-Public Use
  Company Number: PHEH2013US014241

PATIENT
  Age: 87 Year
  Sex: Male

DRUGS (11)
  1. TASIGNA [Suspect]
     Indication: ACUTE MYELOID LEUKAEMIA
     Dosage: 200 MG, TWICE WEEKLY
     Route: 048
     Dates: start: 20100312
  2. CARVEDILOL [Concomitant]
  3. PAXIL//PAROXETINE HYDROCHLORIDE [Concomitant]
  4. HYDROCODONE W/APAP [Concomitant]
  5. MIRALAX [Concomitant]
  6. COMTAN [Concomitant]
  7. LUMIGAN [Concomitant]
  8. LATANOPROST [Concomitant]
  9. CEPHALEXIN [Concomitant]
  10. TOBRAMYCIN [Concomitant]
  11. SYSTANE BALANCE [Concomitant]

REACTIONS (1)
  - Diplopia [Not Recovered/Not Resolved]
